FAERS Safety Report 4677726-8 (Version None)
Quarter: 2005Q2

REPORT INFORMATION
  Report Type: 
  Country: None (occurrence: None)
  Receive Date: 20050527
  Receipt Date: 20050518
  Transmission Date: 20051028
  Serious: Yes (Hospitalization)
  Sender: FDA-Public Use
  Company Number: ITWYE447422FEB05

PATIENT
  Age: 41 Year
  Sex: Male

DRUGS (1)
  1. GEMTUZUMAB OZOGAMICIN (GEMTUZUMAB OZOGAMICIN, INJECTION) [Suspect]
     Indication: ACUTE PROMYELOCYTIC LEUKAEMIA
     Dosage: 10.2 MG 1X PER 1 DAY
     Dates: start: 20050126, end: 20050126

REACTIONS (7)
  - BALANOPOSTHITIS [None]
  - CULTURE POSITIVE [None]
  - HAEMOGLOBIN DECREASED [None]
  - PLATELET COUNT DECREASED [None]
  - STAPHYLOCOCCAL SEPSIS [None]
  - URINARY TRACT INFECTION PSEUDOMONAL [None]
  - WHITE BLOOD CELL COUNT DECREASED [None]
